FAERS Safety Report 6984336-6 (Version None)
Quarter: 2010Q3

REPORT INFORMATION
  Report Type: 
  Country: None (occurrence: None)
  Receive Date: 20100915
  Receipt Date: 20100903
  Transmission Date: 20110219
  Serious: Yes (Other)
  Sender: FDA-Public Use
  Company Number: PHHY2010US59173

PATIENT
  Sex: Female

DRUGS (2)
  1. GENTEAL LUBRICATING EYE GEL (NVO) [Suspect]
     Dosage: 25 MG, UNK
  2. GENTEAL PM LUBRICANT EYE OINTMENT [Suspect]
     Dosage: 3.5 GM, UNK

REACTIONS (3)
  - BLINDNESS [None]
  - VISION BLURRED [None]
  - VISUAL ACUITY REDUCED [None]
